FAERS Safety Report 7943274-2 (Version None)
Quarter: 2011Q4

REPORT INFORMATION
  Report Type: 
  Country: None (occurrence: None)
  Receive Date: 20111128
  Receipt Date: 20111121
  Transmission Date: 20120403
  Serious: Yes (Other)
  Sender: FDA-Public Use
  Company Number: PHHY2011BR102216

PATIENT
  Age: 30 Year
  Sex: Female
  Weight: 64 kg

DRUGS (3)
  1. DICLOFENAC SODIUM [Suspect]
     Indication: PAIN IN EXTREMITY
     Dosage: 1 DF, QD (AT NIGHT DAILY)
     Route: 048
     Dates: start: 20111118, end: 20111120
  2. DICLOFENAC SODIUM [Suspect]
     Dosage: HALF TABLET EVERY 8 HOURS
     Route: 048
  3. DICLOFENAC SODIUM [Suspect]
     Dosage: HALF TABLET 3 HOURS AND 30 MINUTES
     Route: 048
     Dates: start: 20111119

REACTIONS (21)
  - GAIT DISTURBANCE [None]
  - URINARY RETENTION [None]
  - FEELING ABNORMAL [None]
  - CONFUSIONAL STATE [None]
  - SPEECH DISORDER [None]
  - INCORRECT DOSE ADMINISTERED [None]
  - DRUG HYPERSENSITIVITY [None]
  - DIPLOPIA [None]
  - SWELLING [None]
  - CHEST PAIN [None]
  - PRURITUS [None]
  - WEIGHT INCREASED [None]
  - NIGHTMARE [None]
  - COUGH [None]
  - PAIN [None]
  - DYSPNOEA [None]
  - URTICARIA [None]
  - HEADACHE [None]
  - DIZZINESS [None]
  - HYPERHIDROSIS [None]
  - MALAISE [None]
